FAERS Safety Report 10259940 (Version 2)
Quarter: 2014Q4

REPORT INFORMATION
  Report Type: Spontaneous
  Country: DK (occurrence: IT)
  Receive Date: 20140625
  Receipt Date: 20141009
  Transmission Date: 20150528
  Serious: Yes (Hospitalization)
  Sender: FDA-Public Use
  Company Number: IT-FRI-1000068484

PATIENT
  Age: 48 Year
  Sex: Female

DRUGS (5)
  1. ASPIRINA [Suspect]
     Active Substance: ASPIRIN
     Indication: PRODUCT USED FOR UNKNOWN INDICATION
     Dosage: OVERDOSE: 1500 MG (3 TABLETS OF 500 MG)
     Route: 048
     Dates: start: 20131212, end: 20131212
  2. ESCITALOPRAM [Suspect]
     Active Substance: ESCITALOPRAM OXALATE
     Indication: PRODUCT USED FOR UNKNOWN INDICATION
     Dosage: 15 ML OF 20 MG/ML IN 1 SINGLE DOSE
     Route: 048
     Dates: start: 20131212, end: 20131212
  3. ANAFRANIL [Suspect]
     Active Substance: CLOMIPRAMINE HYDROCHLORIDE
     Indication: PRODUCT USED FOR UNKNOWN INDICATION
     Dosage: OVERDOSE: 225 MG (3 TABLETS OF 75 MG)
     Route: 048
     Dates: start: 20131212, end: 20131212
  4. BAYGON (INSECTICIDES SUBSTANCE) [Suspect]
     Active Substance: PROPOXUR
     Indication: PRODUCT USED FOR UNKNOWN INDICATION
     Dosage: OVERDOSE: 3 TABLESPOONS
     Route: 048
     Dates: start: 20131212, end: 20131212
  5. XANAX [Suspect]
     Active Substance: ALPRAZOLAM
     Indication: PRODUCT USED FOR UNKNOWN INDICATION
     Dosage: OVERDOSE: 20 ML OF 0.75 MG/ML
     Route: 048
     Dates: start: 20131212, end: 20131212

REACTIONS (3)
  - Psychomotor hyperactivity [Recovered/Resolved]
  - Drug abuse [Recovered/Resolved]
  - Abdominal pain upper [Recovered/Resolved]

NARRATIVE: CASE EVENT DATE: 20131212
